FAERS Safety Report 6710274-X (Version None)
Quarter: 2010Q2

REPORT INFORMATION
  Report Type: 
  Country: None (occurrence: None)
  Receive Date: 20100504
  Receipt Date: 20100430
  Transmission Date: 20101027
  Serious: Yes (Death)
  Sender: FDA-Public Use
  Company Number: ZA-B.I. PHARMACEUTICALS,INC./RIDGEFIELD-2010-BP-04375BP

PATIENT
  Sex: Female

DRUGS (6)
  1. BLIND (NEVIRAPINE) [Suspect]
     Indication: PROPHYLAXIS AGAINST HIV INFECTION
     Route: 048
     Dates: start: 20100121, end: 20100406
  2. AZT [Concomitant]
     Dates: start: 20091208, end: 20091214
  3. COTRIMAXAZOLE [Concomitant]
     Indication: SUPPORTIVE CARE
  4. MULTI-VITAMINS [Concomitant]
     Indication: SUPPORTIVE CARE
  5. IRON [Concomitant]
     Indication: SUPPORTIVE CARE
  6. TRADITIONAL MEDICATION [Concomitant]

REACTIONS (1)
  - DEATH [None]
